FAERS Safety Report 11777868 (Version 9)
Quarter: 2017Q4

REPORT INFORMATION
  Report Type: Spontaneous
  Country: GB (occurrence: GB)
  Receive Date: 20151125
  Receipt Date: 20171013
  Transmission Date: 20180320
  Serious: Yes (Other)
  Sender: FDA-Public Use
  Company Number: GB-SA-2015SA185599

PATIENT
  Age: 42 Year
  Sex: Female

DRUGS (6)
  1. DOCETAXEL. [Suspect]
     Active Substance: DOCETAXEL
     Dosage: UNK?AT DAY 19
     Route: 051
  2. HERCEPTIN [Suspect]
     Active Substance: TRASTUZUMAB
     Dosage: UNK?AT DAY 19
     Route: 042
  3. PERJETA [Suspect]
     Active Substance: PERTUZUMAB
     Dosage: UNK?AT DAY 19
     Route: 065
  4. HERCEPTIN [Suspect]
     Active Substance: TRASTUZUMAB
     Dosage: UNK?AT DAY 19
     Route: 042
  5. NEULASTA [Suspect]
     Active Substance: PEGFILGRASTIM
     Dosage: UNK?AT DAY 19
     Route: 065
  6. EMEND [Suspect]
     Active Substance: APREPITANT
     Dosage: UNK,CYCLE 7
     Route: 048

REACTIONS (9)
  - Rash [Not Recovered/Not Resolved]
  - Gastrooesophageal reflux disease [Recovered/Resolved]
  - Tumour pain [Recovered/Resolved]
  - Diarrhoea [Not Recovered/Not Resolved]
  - Fatigue [Recovered/Resolved]
  - Nausea [Not Recovered/Not Resolved]
  - Dyspnoea [Unknown]
  - Neuropathy peripheral [Unknown]
  - Alopecia [Not Recovered/Not Resolved]
